FAERS Safety Report 16422077 (Version 4)
Quarter: 2022Q3

REPORT INFORMATION
  Report Type: Report from Study
  Country: CA (occurrence: CA)
  Receive Date: 20190612
  Receipt Date: 20220706
  Transmission Date: 20221027
  Serious: Yes (Hospitalization, Other)
  Sender: FDA-Public Use
  Company Number: CA-GLAXOSMITHKLINE-CA2019GSK088185

PATIENT

DRUGS (31)
  1. ALBUTEROL SULFATE [Suspect]
     Active Substance: ALBUTEROL SULFATE
     Indication: Product used for unknown indication
     Dosage: 2 PUFF(S), PRN
     Route: 055
     Dates: start: 20160101
  2. INCRUSE ELLIPTA [Suspect]
     Active Substance: UMECLIDINIUM BROMIDE
     Indication: Product used for unknown indication
     Dosage: 1 PUFF(S), QD
     Route: 055
  3. MONTELUKAST SODIUM [Suspect]
     Active Substance: MONTELUKAST SODIUM
     Indication: Asthma
     Dosage: 10 MG, QD
     Route: 048
  4. PRAVASTATIN SODIUM [Suspect]
     Active Substance: PRAVASTATIN SODIUM
     Indication: Product used for unknown indication
     Dosage: 10 MG, QD
     Route: 048
  5. FOLIC ACID [Suspect]
     Active Substance: FOLIC ACID
     Indication: Product used for unknown indication
     Dosage: 5 MG, QD
     Route: 048
  6. SINGULAIR [Suspect]
     Active Substance: MONTELUKAST SODIUM
     Indication: Product used for unknown indication
     Dosage: 10 MG, QD
  7. DILTIAZEM HYDROCHLORIDE [Suspect]
     Active Substance: DILTIAZEM HYDROCHLORIDE
     Indication: Product used for unknown indication
     Dosage: 120 MG, QD
     Route: 048
  8. DILTIAZEM [Suspect]
     Active Substance: DILTIAZEM
     Indication: Product used for unknown indication
     Dosage: 120 MG, QD
     Route: 048
  9. ZENHALE [Suspect]
     Active Substance: FORMOTEROL FUMARATE\MOMETASONE FUROATE
     Indication: Asthma
     Dosage: 2 PUFF(S), BID
     Route: 055
  10. XOLAIR [Suspect]
     Active Substance: OMALIZUMAB
     Indication: Product used for unknown indication
     Dosage: 150 MG, UNK
     Route: 058
  11. ATROVENT [Suspect]
     Active Substance: IPRATROPIUM BROMIDE
     Indication: Product used for unknown indication
     Dosage: 8 DF
     Route: 055
  12. IPRATROPIUM BROMIDE [Suspect]
     Active Substance: IPRATROPIUM BROMIDE
     Indication: Product used for unknown indication
     Dosage: 2 PUFF(S), QID
     Route: 055
  13. SPIRIVA RESPIMAT [Suspect]
     Active Substance: TIOTROPIUM BROMIDE
     Indication: Product used for unknown indication
     Dosage: 2 PUFF(S), QD
     Route: 055
  14. METHOTREXATE [Suspect]
     Active Substance: METHOTREXATE
     Indication: Product used for unknown indication
     Dosage: 25 MG, WE
     Route: 048
  15. EZETIMIBE [Suspect]
     Active Substance: EZETIMIBE
     Indication: Product used for unknown indication
     Dosage: 1 DF, QD
     Route: 048
  16. EZETIMIBE [Suspect]
     Active Substance: EZETIMIBE
     Indication: Product used for unknown indication
     Dosage: 10 MG, QD
     Route: 048
  17. EZETIMIBE [Suspect]
     Active Substance: EZETIMIBE
     Indication: Product used for unknown indication
     Dosage: 1 DF (TABLET), QD, 10 MG
     Route: 048
  18. HUMALOG [Suspect]
     Active Substance: INSULIN LISPRO
     Indication: Product used for unknown indication
     Dosage: 20 UNITS, BID
  19. FORMOTEROL\MOMETASONE [Suspect]
     Active Substance: FORMOTEROL\MOMETASONE
     Indication: Asthma
     Dosage: 2 DF, BID
     Route: 055
  20. FORMOTEROL\MOMETASONE [Suspect]
     Active Substance: FORMOTEROL\MOMETASONE
     Dosage: 4 DF, QD
     Route: 055
  21. OMALIZUMAB [Suspect]
     Active Substance: OMALIZUMAB
     Indication: Asthma
     Dosage: 150 MG
     Route: 058
  22. OMNARIS [Suspect]
     Active Substance: CICLESONIDE
     Indication: Product used for unknown indication
     Dosage: 2 DF (SPRAYS), QD
  23. PREDNISONE [Concomitant]
     Active Substance: PREDNISONE
     Indication: Asthma
     Dosage: 30 MG, QD
     Route: 048
  24. PREDNISONE [Concomitant]
     Active Substance: PREDNISONE
     Dosage: 20 MG, UNK
     Route: 048
  25. PREDNISONE [Concomitant]
     Active Substance: PREDNISONE
     Dosage: 15 MG, UNK
     Route: 048
  26. PREDNISONE [Concomitant]
     Active Substance: PREDNISONE
     Dosage: 10 MG, UNK
     Route: 048
  27. PREDNISONE [Concomitant]
     Active Substance: PREDNISONE
     Dosage: 5 MG, UNK
     Route: 048
  28. APIXABAN [Concomitant]
     Active Substance: APIXABAN
     Indication: Atrial fibrillation
     Dosage: 5 MG, BID
     Route: 048
  29. LANTUS [Concomitant]
     Active Substance: INSULIN GLARGINE
     Indication: Type 2 diabetes mellitus
     Dosage: 1 DF, BID, 18 UNITS
     Route: 058
  30. LANTUS SOLOSTAR [Concomitant]
     Active Substance: INSULIN GLARGINE
     Indication: Type 2 diabetes mellitus
     Dosage: UNK UNK, BID
     Route: 058
  31. INSULIN LISPRO [Concomitant]
     Active Substance: INSULIN LISPRO
     Indication: Type 2 diabetes mellitus
     Dosage: 20 UNITS, BID

REACTIONS (16)
  - Asthma [Unknown]
  - Dyspnoea [Unknown]
  - Wheezing [Unknown]
  - Cough [Unknown]
  - Pyrexia [Unknown]
  - Hypoxia [Unknown]
  - Full blood count abnormal [Unknown]
  - Chest discomfort [Unknown]
  - Oropharyngeal pain [Unknown]
  - Discomfort [Unknown]
  - Obstructive airways disorder [Unknown]
  - Left ventricular hypertrophy [Unknown]
  - Oedema peripheral [Unknown]
  - Diaphragmatic disorder [Unknown]
  - Weight increased [Unknown]
  - Therapeutic product effect incomplete [Unknown]
